FAERS Safety Report 12893116 (Version 19)
Quarter: 2021Q4

REPORT INFORMATION
  Report Type: Report from Study
  Country: GB (occurrence: GB)
  Receive Date: 20161028
  Receipt Date: 20211213
  Transmission Date: 20220304
  Serious: Yes (Life-Threatening, Hospitalization, Disabling, Other)
  Sender: FDA-Public Use
  Company Number: None

PATIENT
  Age: 42 Year
  Sex: Female
  Weight: 98 kg

DRUGS (22)
  1. DOCETAXEL [Suspect]
     Active Substance: DOCETAXEL
     Indication: Breast cancer metastatic
     Dosage: 160 MG (LOADING DOSE)
     Route: 042
     Dates: start: 20160718, end: 20160718
  2. DOCETAXEL [Suspect]
     Active Substance: DOCETAXEL
     Dosage: 160 MG, MONTHLY (MAINTENANCE DOSE)
     Dates: start: 20160808, end: 20160808
  3. DOCETAXEL [Suspect]
     Active Substance: DOCETAXEL
     Dosage: 164 MG, MONTHLY (MAINTENANCE DOSE)
     Dates: start: 20160830, end: 20160830
  4. TRASTUZUMAB [Suspect]
     Active Substance: TRASTUZUMAB
     Indication: Breast cancer metastatic
     Dosage: (08/08/16 TO 30/08/16 420 MG)
     Route: 042
     Dates: start: 20160808, end: 20160830
  5. TRASTUZUMAB [Suspect]
     Active Substance: TRASTUZUMAB
     Dosage: 798MG (DOSE LOADING)
     Route: 042
  6. TRASTUZUMAB [Suspect]
     Active Substance: TRASTUZUMAB
     Dosage: 609 MG, MONTHLY
     Route: 042
  7. PERTUZUMAB [Suspect]
     Active Substance: PERTUZUMAB
     Indication: Breast cancer metastatic
     Dosage: 840 MG (LOADING DOSE)
     Route: 042
     Dates: start: 20160718, end: 20160718
  8. PERTUZUMAB [Suspect]
     Active Substance: PERTUZUMAB
     Dosage: 420 MG, MONTHLY (MAINTENANCE DOSE)
     Dates: start: 20160808, end: 20160808
  9. PERTUZUMAB [Suspect]
     Active Substance: PERTUZUMAB
     Dosage: 420 MG, MONTHLY (MAINTENANCE DOSE)
     Dates: start: 20160830, end: 20160830
  10. HERCEPTIN [Suspect]
     Active Substance: TRASTUZUMAB
     Indication: Breast cancer metastatic
     Dosage: 798 MG (SINGLE LOADING DOSE)
     Route: 042
     Dates: start: 20160718, end: 20160718
  11. HERCEPTIN [Suspect]
     Active Substance: TRASTUZUMAB
     Dosage: 588 MG, MONTHLY (MAINTENANCE DOSE)
     Route: 042
     Dates: start: 20160808, end: 20160808
  12. HERCEPTIN [Suspect]
     Active Substance: TRASTUZUMAB
     Dosage: 609 MG, MONTHLY (MAINTENANCE DOSE)
     Dates: start: 20160830, end: 20160830
  13. DOXYCYCLINE [Concomitant]
     Active Substance: DOXYCYCLINE
     Indication: Rash
     Dosage: 100 MG
     Route: 048
     Dates: start: 20160803, end: 20160821
  14. TINZAPARIN [Concomitant]
     Active Substance: TINZAPARIN
     Dosage: UNK
  15. FLUCLOXACILLIN [Concomitant]
     Active Substance: FLUCLOXACILLIN
     Dosage: UNK
  16. MAGNASPARTATE [Concomitant]
     Indication: Blood magnesium decreased
     Dosage: 10 MMOL
     Dates: start: 20160908
  17. MAGNASPARTATE [Concomitant]
     Indication: Blood magnesium decreased
     Dates: start: 20160908
  18. ONDANSETRON [Concomitant]
     Active Substance: ONDANSETRON
     Indication: Nausea
     Dosage: 4 MG, UNK (TABLET)
     Route: 048
     Dates: start: 20160908
  19. ACETAMINOPHEN [Concomitant]
     Active Substance: ACETAMINOPHEN
     Indication: Pain
     Dosage: 1 G (TABLET)
     Route: 048
     Dates: start: 20160908
  20. CYCLIZINE [Concomitant]
     Active Substance: CYCLIZINE
     Indication: Nausea
     Dosage: 50 MG, AS NEEDED (TABLET)
     Route: 048
     Dates: start: 20160908
  21. DIHYDROCODEINE [Concomitant]
     Active Substance: DIHYDROCODEINE
     Indication: Pain
     Dosage: 30 MG (TABLET)
     Route: 048
     Dates: start: 20160908
  22. CITALOPRAM [Concomitant]
     Active Substance: CITALOPRAM HYDROBROMIDE
     Indication: Depression
     Dosage: 20 MG, DAILY (TABLET)
     Route: 048
     Dates: start: 20160921

REACTIONS (11)
  - Neutropenic sepsis [Not Recovered/Not Resolved]
  - Acute kidney injury [Unknown]
  - Pneumonia [Recovered/Resolved]
  - Colitis [Recovering/Resolving]
  - Colitis ischaemic [Not Recovered/Not Resolved]
  - Abdominal pain [Recovered/Resolved]
  - Vomiting [Recovered/Resolved]
  - Diarrhoea [Recovered/Resolved]
  - Peritonitis [Recovered/Resolved]
  - Perforation [Recovering/Resolving]
  - Rash [Unknown]

NARRATIVE: CASE EVENT DATE: 20160907
